FAERS Safety Report 9922108 (Version 4)
Quarter: 2014Q3

REPORT INFORMATION
  Report Type: Spontaneous
  Country: AU (occurrence: AU)
  Receive Date: 20140225
  Receipt Date: 20140922
  Transmission Date: 20150326
  Serious: Yes (Other)
  Sender: FDA-Public Use
  Company Number: AU-AMGEN-AUSSP2013038750

PATIENT
  Age: 66 Year
  Sex: Female
  Weight: 65.6 kg

DRUGS (7)
  1. XGEVA [Suspect]
     Active Substance: DENOSUMAB
     Indication: BREAST CANCER METASTATIC
     Dosage: 120 MG, Q4WK
     Route: 058
     Dates: start: 201211
  2. ZOMETA [Concomitant]
     Active Substance: ZOLEDRONIC ACID
     Dosage: UNK UNK, QMO
     Dates: start: 2011, end: 201211
  3. CALCIUM [Concomitant]
     Active Substance: CALCIUM
  4. XGEVA [Suspect]
     Active Substance: DENOSUMAB
     Indication: METASTASES TO BONE
  5. VITAMIN D [Concomitant]
     Active Substance: CHOLECALCIFEROL
  6. PREDNISOLONE. [Concomitant]
     Active Substance: PREDNISOLONE
     Dosage: 5 MG, QD
  7. PREDNISONE. [Concomitant]
     Active Substance: PREDNISONE
     Dosage: 5 MG, QD

REACTIONS (25)
  - Pain in jaw [Recovering/Resolving]
  - Inappropriate schedule of drug administration [Not Recovered/Not Resolved]
  - Pain in extremity [Recovering/Resolving]
  - Purulent discharge [Unknown]
  - Feeling abnormal [Unknown]
  - Sleep disorder due to general medical condition, insomnia type [Not Recovered/Not Resolved]
  - Pain [Not Recovered/Not Resolved]
  - Impaired healing [Not Recovered/Not Resolved]
  - Tooth extraction [Recovering/Resolving]
  - Gingival pain [Not Recovered/Not Resolved]
  - Joint crepitation [Not Recovered/Not Resolved]
  - Cancer pain [Unknown]
  - Dizziness [Unknown]
  - Rheumatoid arthritis [Unknown]
  - Tooth abscess [Unknown]
  - Toothache [Unknown]
  - Bone pain [Recovered/Resolved]
  - Mobility decreased [Unknown]
  - Ulcer [Unknown]
  - Discomfort [Not Recovered/Not Resolved]
  - Oral pustule [Unknown]
  - Peripheral swelling [Unknown]
  - Malaise [Unknown]
  - Stress [Recovering/Resolving]
  - White blood cell count abnormal [Unknown]

NARRATIVE: CASE EVENT DATE: 2013
